FAERS Safety Report 10211002 (Version 1)
Quarter: 2014Q2

REPORT INFORMATION
  Report Type: Spontaneous
  Country: US (occurrence: None)
  Receive Date: 20140528
  Receipt Date: 20140528
  Transmission Date: 20141212
  Serious: Yes (Hospitalization)
  Sender: FDA-Public Use
  Company Number: UNT-2014-000568

PATIENT
  Age: 81 Year
  Sex: Female
  Weight: 72.6 kg

DRUGS (1)
  1. TYVASO [Suspect]
     Indication: COR PULMONALE CHRONIC
     Route: 055
     Dates: start: 20140127

REACTIONS (4)
  - Spinal fracture [None]
  - Back pain [None]
  - Cough [None]
  - Oropharyngeal pain [None]
